FAERS Safety Report 10345251 (Version 1)
Quarter: 2014Q3

REPORT INFORMATION
  Report Type: Spontaneous
  Country: US (occurrence: US)
  Receive Date: 20140728
  Receipt Date: 20140728
  Transmission Date: 20150326
  Serious: No
  Sender: FDA-Public Use
  Company Number: US-009507513-1407USA005665

PATIENT
  Sex: Female

DRUGS (2)
  1. MIRALAX [Suspect]
     Active Substance: POLYETHYLENE GLYCOL 3350
     Indication: PRODUCT USED FOR UNKNOWN INDICATION
     Dosage: UNK, UNKNOWN
     Route: 048
     Dates: start: 2009
  2. MIRALAX [Suspect]
     Active Substance: POLYETHYLENE GLYCOL 3350
     Dosage: 17 G, ONCE
     Route: 048
     Dates: start: 2013

REACTIONS (7)
  - Prescribed overdose [Unknown]
  - Headache [Unknown]
  - Feeling abnormal [Unknown]
  - Pyrexia [Unknown]
  - Pain [Unknown]
  - Drug prescribing error [Unknown]
  - Asthenia [Unknown]

NARRATIVE: CASE EVENT DATE: 2009
